FAERS Safety Report 8559558-3 (Version None)
Quarter: 2012Q2

REPORT INFORMATION
  Report Type: 
  Country: None (occurrence: None)
  Receive Date: 20120418
  Receipt Date: 20120130
  Transmission Date: 20120825
  Serious: Yes (Other)
  Sender: FDA-Public Use
  Company Number: 2012-00106

PATIENT
  Age: 43 Year
  Sex: Female

DRUGS (1)
  1. LEVOFLOXACIN [Suspect]
     Indication: PNEUMONIA
     Dosage: 500 MG (500 MG, 1 IN 1 D), PER ORAL
     Route: 048
     Dates: start: 20120124, end: 20120129

REACTIONS (1)
  - ANOSMIA [None]
